FAERS Safety Report 7863778-0 (Version None)
Quarter: 2011Q4

REPORT INFORMATION
  Report Type: 
  Country: None (occurrence: None)
  Receive Date: 20111028
  Receipt Date: 20111018
  Transmission Date: 20120403
  Serious: Yes (Hospitalization)
  Sender: FDA-Public Use
  Company Number: AR-BIOGENIDEC-2011BI013623

PATIENT
  Age: 47 Year
  Sex: Female

DRUGS (7)
  1. TYSABRI [Suspect]
     Route: 042
     Dates: start: 20100101
  2. SERTRALINE HYDROCHLORIDE [Concomitant]
     Indication: DEPRESSION
     Route: 048
  3. ASOTREX [Concomitant]
     Indication: ARTHRALGIA
     Route: 048
  4. TYSABRI [Suspect]
     Indication: MULTIPLE SCLEROSIS
     Route: 042
     Dates: start: 20100101
  5. DICLOFENAC POTASSIUM [Concomitant]
     Indication: MYALGIA
     Route: 048
  6. RANITIDINE [Concomitant]
     Indication: DYSPEPSIA
     Route: 048
  7. NSAID [Concomitant]
     Indication: ARTHRALGIA
     Route: 048

REACTIONS (1)
  - CONVERSION DISORDER [None]
